FAERS Safety Report 6871298-5 (Version None)
Quarter: 2010Q3

REPORT INFORMATION
  Report Type: 
  Country: None (occurrence: None)
  Receive Date: 20100723
  Receipt Date: 20100713
  Transmission Date: 20110219
  Serious: Yes (Other)
  Sender: FDA-Public Use
  Company Number: CZ-ABBOTT-10P-217-0641883-00

PATIENT
  Sex: Male

DRUGS (6)
  1. HUMIRA [Suspect]
     Indication: CROHN'S DISEASE
     Route: 058
     Dates: start: 20090317
  2. HUMIRA [Suspect]
     Route: 058
  3. HUMIRA [Suspect]
     Route: 058
  4. PENTASA [Concomitant]
     Indication: CROHN'S DISEASE
     Dates: start: 20060621
  5. CONTROLOC [Concomitant]
     Indication: OESOPHAGITIS
     Dates: start: 20080409
  6. MEDROL [Concomitant]
     Indication: CROHN'S DISEASE
     Dates: start: 20100316, end: 20100426

REACTIONS (1)
  - CROHN'S DISEASE [None]
